FAERS Safety Report 5144141-2 (Version None)
Quarter: 2006Q4

REPORT INFORMATION
  Report Type: 
  Country: None (occurrence: None)
  Receive Date: 20061106
  Receipt Date: 20061026
  Transmission Date: 20070319
  Serious: Yes (Hospitalization)
  Sender: FDA-Public Use
  Company Number: US-AMGEN-US198155

PATIENT
  Sex: Male
  Weight: 61 kg

DRUGS (1)
  1. NEUPOGEN [Suspect]
     Indication: AGRANULOCYTOSIS
     Route: 042

REACTIONS (1)
  - GASTROINTESTINAL HAEMORRHAGE [None]
